FAERS Safety Report 9254544 (Version 1)
Quarter: 2013Q2

REPORT INFORMATION
  Report Type: Spontaneous
  Country: US (occurrence: None)
  Receive Date: 20130422
  Receipt Date: 20130422
  Transmission Date: 20140414
  Serious: Yes (Life-Threatening, Hospitalization)
  Sender: FDA-Public Use
  Company Number: US-1197627

PATIENT
  Age: 77 Year
  Sex: Female

DRUGS (3)
  1. DUREZOL [Suspect]
     Indication: CATARACT OPERATION
     Route: 047
     Dates: start: 20130305, end: 20130408
  2. BROMDAY [Concomitant]
  3. ZYMAXID [Concomitant]

REACTIONS (2)
  - Apparent life threatening event [None]
  - Hypersensitivity [None]
